FAERS Safety Report 20567971 (Version 1)
Quarter: 2022Q1

REPORT INFORMATION
  Report Type: Spontaneous
  Country: US (occurrence: None)
  Receive Date: 20220308
  Receipt Date: 20220308
  Transmission Date: 20220423
  Serious: Yes (Hospitalization)
  Sender: FDA-Public Use
  Company Number: None

PATIENT
  Age: 81 Year
  Sex: Female
  Weight: 74.25 kg

DRUGS (9)
  1. SENNA [Suspect]
     Active Substance: SENNA LEAF\SENNOSIDES\SENNOSIDES A AND B
     Indication: Constipation
  2. OXYGEN 2L [Concomitant]
  3. JEVITY TUBE FEEDING [Concomitant]
  4. CARDIZEM [Concomitant]
     Active Substance: DILTIAZEM HYDROCHLORIDE
  5. ONDANSETRON [Concomitant]
     Active Substance: ONDANSETRON
  6. METOCLOPRAMIDE [Concomitant]
     Active Substance: METOCLOPRAMIDE
  7. SODIUM BICARBONATE [Concomitant]
     Active Substance: SODIUM BICARBONATE
  8. BISOPROLOL [Concomitant]
     Active Substance: BISOPROLOL
  9. MILK OF MAG [Concomitant]

REACTIONS (6)
  - Infection [None]
  - Sepsis [None]
  - Intestinal obstruction [None]
  - Cardiac failure congestive [None]
  - Pulmonary oedema [None]
  - Pleural effusion [None]

NARRATIVE: CASE EVENT DATE: 20220214
